FAERS Safety Report 6818115-7 (Version None)
Quarter: 2010Q3

REPORT INFORMATION
  Report Type: 
  Country: None (occurrence: None)
  Receive Date: 20100706
  Receipt Date: 20100629
  Transmission Date: 20110219
  Serious: Yes (Other)
  Sender: FDA-Public Use
  Company Number: CHPA2010US10865

PATIENT
  Sex: Female

DRUGS (1)
  1. PREVACID 24 HR [Suspect]
     Indication: DYSPEPSIA
     Dosage: 15 MG, QD
     Route: 048
     Dates: start: 20100613, end: 20100618

REACTIONS (6)
  - ABDOMINAL DISCOMFORT [None]
  - DRUG INEFFECTIVE FOR UNAPPROVED INDICATION [None]
  - GASTRIC ULCER [None]
  - INCORRECT DRUG ADMINISTRATION DURATION [None]
  - PNEUMONIA [None]
  - SINUSITIS [None]
